FAERS Safety Report 9219888 (Version 1)
Quarter: 2013Q2

REPORT INFORMATION
  Report Type: Spontaneous
  Country: US (occurrence: US)
  Receive Date: 20130409
  Receipt Date: 20130409
  Transmission Date: 20140414
  Serious: Yes (Other)
  Sender: FDA-Public Use
  Company Number: US-ROCHE-1210418

PATIENT
  Age: 58 Year
  Sex: Female

DRUGS (4)
  1. ACTILYSE [Suspect]
     Indication: INTRACARDIAC THROMBUS
     Route: 042
  2. ACTILYSE [Suspect]
     Indication: PULMONARY EMBOLISM
  3. EPINEPHRINE [Concomitant]
     Indication: HYPOTENSION
     Route: 040
  4. EPINEPHRINE [Concomitant]
     Indication: PULMONARY HYPERTENSION

REACTIONS (1)
  - Blood product transfusion [Unknown]
